FAERS Safety Report 5357166-9 (Version None)
Quarter: 2007Q2

REPORT INFORMATION
  Report Type: 
  Country: None (occurrence: None)
  Receive Date: 20070612
  Receipt Date: 20070612
  Transmission Date: 20071010
  Serious: Yes (Hospitalization)
  Sender: FDA-Public Use
  Company Number: None

PATIENT
  Sex: Female
  Weight: 116.1208 kg

DRUGS (1)
  1. HUMIRA [Suspect]
     Indication: SARCOIDOSIS
     Dosage: 40 MG, QW, SUBQ
     Route: 058
     Dates: start: 20060811, end: 20070518

REACTIONS (5)
  - BACK PAIN [None]
  - INFECTION [None]
  - INTESTINAL MASS [None]
  - MUSCLE ABSCESS [None]
  - RENAL MASS [None]
